FAERS Safety Report 8518669-9 (Version None)
Quarter: 2012Q3

REPORT INFORMATION
  Report Type: 
  Country: None (occurrence: None)
  Receive Date: 20120718
  Receipt Date: 20110622
  Transmission Date: 20120928
  Serious: No
  Sender: FDA-Public Use
  Company Number: US-BRISTOL-MYERS SQUIBB COMPANY-15801061

PATIENT
  Age: 65 Year
  Sex: Female

DRUGS (3)
  1. COUMADIN [Suspect]
     Indication: THROMBOSIS
     Dosage: THERAPY FROM:25 YEARS AGO
  2. CHOLESTEROL MEDICATION [Concomitant]
  3. THYROID TAB [Concomitant]

REACTIONS (2)
  - SKIN DISCOLOURATION [None]
  - SKIN ATROPHY [None]
